FAERS Safety Report 9701926 (Version 1)
Quarter: 2013Q4

REPORT INFORMATION
  Report Type: Spontaneous
  Country: SE (occurrence: None)
  Receive Date: 20131120
  Receipt Date: 20131120
  Transmission Date: 20140711
  Serious: Yes (Death, Hospitalization)
  Sender: FDA-Public Use
  Company Number: 152101

PATIENT
  Age: 18 Year
  Sex: Male

DRUGS (2)
  1. NOREPINEPHRINE BITARTRATE [Suspect]
  2. NOREPINEPHRINE BITARTRATE [Suspect]
     Indication: PROPHYLAXIS

REACTIONS (5)
  - Stress cardiomyopathy [None]
  - Electrocardiogram ST segment depression [None]
  - Ventricular fibrillation [None]
  - Cardiac failure [None]
  - Cardiogenic shock [None]
